FAERS Safety Report 5086436-7 (Version None)
Quarter: 2006Q3

REPORT INFORMATION
  Report Type: 
  Country: None (occurrence: None)
  Receive Date: 20060703
  Receipt Date: 20060327
  Transmission Date: 20061208
  Serious: No
  Sender: FDA-Public Use
  Company Number: 2006S1002691

PATIENT
  Age: 63 Year
  Sex: Female

DRUGS (5)
  1. CLOZAPINE [Suspect]
     Indication: SCHIZOPHRENIA
     Dosage: 400 MG;HS;ORAL
     Route: 048
     Dates: start: 20030301
  2. LITHIUM CARBONATE [Concomitant]
  3. DOCUSATE SODIUM [Concomitant]
  4. BUPROPION HYDROCHLORIDE [Concomitant]
  5. TOCOPHEROL CONCENTRATE CAP [Concomitant]

REACTIONS (1)
  - LEUKOPENIA [None]
